FAERS Safety Report 7236324-2 (Version None)
Quarter: 2011Q1

REPORT INFORMATION
  Report Type: 
  Country: None (occurrence: None)
  Receive Date: 20110120
  Receipt Date: 20110110
  Transmission Date: 20110831
  Serious: Yes (Hospitalization)
  Sender: FDA-Public Use
  Company Number: US-WATSON-2011-00420

PATIENT
  Age: 20 Year
  Sex: Female

DRUGS (1)
  1. ALBUTEROL SULFATE AND IPRATROPIUM BROMIDE [Suspect]
     Indication: ASTHMA
     Dosage: UNK

REACTIONS (1)
  - METABOLIC ACIDOSIS [None]
